FAERS Safety Report 9647978 (Version 2)
Quarter: 2013Q4

REPORT INFORMATION
  Report Type: Spontaneous
  Country: US (occurrence: US)
  Receive Date: 20131028
  Receipt Date: 20131108
  Transmission Date: 20140711
  Serious: No
  Sender: FDA-Public Use
  Company Number: US-PFIZER INC-2013304056

PATIENT
  Age: 48 Year
  Sex: Female

DRUGS (15)
  1. LYRICA [Suspect]
     Dosage: UNK
  2. LIPITOR [Suspect]
     Dosage: UNK
  3. NAPROXEN SODIUM [Concomitant]
     Dosage: UNK
  4. CODEINE [Concomitant]
     Dosage: UNK
  5. ULTRAM [Concomitant]
     Dosage: UNK
  6. IODINE [Concomitant]
     Dosage: UNK
  7. TOPAMAX [Concomitant]
     Dosage: UNK
  8. VYTORIN [Concomitant]
     Dosage: UNK
  9. LESCOL [Concomitant]
     Dosage: UNK
  10. ZETIA [Concomitant]
     Dosage: UNK
  11. ZOCOR [Concomitant]
     Dosage: UNK
  12. IMITREX [Concomitant]
     Dosage: UNK
  13. LAMICTAL [Concomitant]
     Dosage: UNK
  14. NUCYNTA [Concomitant]
     Dosage: UNK
  15. BENADRYL [Concomitant]
     Dosage: UNK

REACTIONS (1)
  - Drug hypersensitivity [Unknown]
